FAERS Safety Report 21400255 (Version 1)
Quarter: 2022Q3

REPORT INFORMATION
  Report Type: Spontaneous
  Country: US (occurrence: None)
  Receive Date: 20220929
  Receipt Date: 20220929
  Transmission Date: 20221026
  Serious: No
  Sender: FDA-Public Use
  Company Number: None

PATIENT
  Age: 74 Year
  Sex: Female
  Weight: 115.67 kg

DRUGS (38)
  1. CAPECITABINE [Suspect]
     Active Substance: CAPECITABINE
     Indication: Breast cancer female
     Dosage: FREQUENCY : TWICE A DAY;?
     Route: 048
     Dates: start: 202206
  2. XGEVA [Suspect]
     Active Substance: DENOSUMAB
     Indication: Breast cancer female
     Dosage: FREQUENCY : MONTHLY;?
     Route: 058
     Dates: start: 202206
  3. ALENDRONATE SODIUM [Concomitant]
     Active Substance: ALENDRONATE SODIUM
  4. AMBIEN [Concomitant]
     Active Substance: ZOLPIDEM TARTRATE
  5. ANASTROZOLE [Concomitant]
     Active Substance: ANASTROZOLE
  6. ASPIRIN [Concomitant]
     Active Substance: ASPIRIN
  7. ATORVASTATIN [Concomitant]
     Active Substance: ATORVASTATIN
  8. BIOTIN [Concomitant]
     Active Substance: BIOTIN
  9. CALCIUM\VITAMIN D [Concomitant]
     Active Substance: CALCIUM\VITAMIN D
  10. CLONAZEPAM [Concomitant]
     Active Substance: CLONAZEPAM
  11. COENZYME Q10 [Concomitant]
     Active Substance: DIETARY SUPPLEMENT\UBIDECARENONE
  12. CYCLOBENZAPRINE [Concomitant]
     Active Substance: CYCLOBENZAPRINE
  13. DULOXETINE HYDROCHLORIDE [Concomitant]
     Active Substance: DULOXETINE HYDROCHLORIDE
  14. FISH OIL [Concomitant]
     Active Substance: FISH OIL
  15. GARLIC OIL [Concomitant]
     Active Substance: GARLIC OIL
  16. Ginger Roots [Concomitant]
  17. iron-150 [Concomitant]
  18. LETROZOLE [Concomitant]
     Active Substance: LETROZOLE
  19. LEXAPRO [Concomitant]
     Active Substance: ESCITALOPRAM OXALATE
  20. LIDODERM [Concomitant]
     Active Substance: LIDOCAINE
  21. LINZESS [Concomitant]
     Active Substance: LINACLOTIDE
  22. LISINOPRIL [Concomitant]
     Active Substance: LISINOPRIL
  23. MAGNESIUM GLUCONATE [Concomitant]
     Active Substance: MAGNESIUM GLUCONATE
  24. MIRTAZAPINE [Concomitant]
     Active Substance: MIRTAZAPINE
  25. VITAMINS [Concomitant]
     Active Substance: VITAMINS
  26. OXYCODONE HYDROCHLORIDE [Concomitant]
     Active Substance: OXYCODONE HYDROCHLORIDE
  27. POTASSIUM CHLORIDE [Concomitant]
     Active Substance: POTASSIUM CHLORIDE
  28. Crys ER [Concomitant]
  29. PROCHLORPERAZINE MALEATE [Concomitant]
     Active Substance: PROCHLORPERAZINE MALEATE
  30. SELENIUM [Concomitant]
     Active Substance: SELENIUM
  31. DOCUSATE SODIUM\SENNOSIDES [Concomitant]
     Active Substance: DOCUSATE SODIUM\SENNOSIDES
  32. UNISOM SLEEPTABS [Concomitant]
     Active Substance: DOXYLAMINE SUCCINATE
  33. VITAMIN A [Concomitant]
     Active Substance: VITAMIN A
  34. VITAMIN B12 [Concomitant]
     Active Substance: CYANOCOBALAMIN
  35. VITAMIN C [Concomitant]
     Active Substance: ASCORBIC ACID
  36. VITAMIN D3 [Concomitant]
     Active Substance: CHOLECALCIFEROL
  37. VITAMIN E [Concomitant]
     Active Substance: .ALPHA.-TOCOPHEROL
  38. ZINC [Concomitant]
     Active Substance: ZINC

REACTIONS (1)
  - Disease progression [None]
